FAERS Safety Report 23863549 (Version 1)
Quarter: 2024Q2

REPORT INFORMATION
  Report Type: Spontaneous
  Country: US (occurrence: None)
  Receive Date: 20240515
  Receipt Date: 20240515
  Transmission Date: 20240716
  Serious: No
  Sender: FDA-Public Use
  Company Number: None

PATIENT
  Age: 86 Year
  Sex: Female
  Weight: 47.63 kg

DRUGS (1)
  1. XDEMVY [Suspect]
     Active Substance: LOTILANER
     Indication: Product used for unknown indication
     Dosage: FREQUENCY : EVERY 12 HOURS;?
     Route: 031
     Dates: start: 20240430, end: 20240430

REACTIONS (2)
  - Eyelid pain [None]
  - Eye pain [None]

NARRATIVE: CASE EVENT DATE: 20240430
